FAERS Safety Report 9881758 (Version 2)
Quarter: 2014Q1

REPORT INFORMATION
  Report Type: Spontaneous
  Country: DE (occurrence: DE)
  Receive Date: 20140207
  Receipt Date: 20140214
  Transmission Date: 20141002
  Serious: Yes (Hospitalization)
  Sender: FDA-Public Use
  Company Number: DE-SA-2014SA014609

PATIENT
  Age: 75 Year
  Sex: Male

DRUGS (3)
  1. OXALIPLATIN [Suspect]
     Indication: RECTAL CANCER
     Dosage: BIMONTHLY
     Route: 065
  2. LEUCOVORIN [Concomitant]
     Indication: RECTAL CANCER
     Dosage: ON DAY 1 BIMONTHLY
  3. 5-FU [Concomitant]
     Indication: RECTAL CANCER
     Dosage: FOLLOWED ON DAY 1 AS A CONTINOUS INFUSON BIMONTHLY

REACTIONS (16)
  - Hypersensitivity vasculitis [Recovering/Resolving]
  - Pyrexia [Recovered/Resolved]
  - Petechiae [Recovered/Resolved]
  - Oedema peripheral [Recovered/Resolved]
  - Skin ulcer [Recovered/Resolved]
  - Arthralgia [Recovered/Resolved]
  - Leukocytosis [Unknown]
  - C-reactive protein increased [Recovered/Resolved]
  - Blood urea increased [Recovered/Resolved]
  - Palpable purpura [Recovered/Resolved]
  - Hypochromic anaemia [Unknown]
  - Glomerulonephritis acute [Recovering/Resolving]
  - Renal failure acute [Recovering/Resolving]
  - Blood creatinine increased [Recovering/Resolving]
  - Proteinuria [Recovering/Resolving]
  - Haematuria [Recovering/Resolving]
